FAERS Safety Report 16347570 (Version 1)
Quarter: 2019Q2

REPORT INFORMATION
  Report Type: Spontaneous
  Country: DE (occurrence: DE)
  Receive Date: 20190523
  Receipt Date: 20190523
  Transmission Date: 20190711
  Serious: Yes (Hospitalization, Disabling, Other)
  Sender: FDA-Public Use
  Company Number: DE-TEVA-2019-DE-1053127

PATIENT
  Age: 36 Year
  Sex: Female

DRUGS (1)
  1. COPAXONE [Suspect]
     Active Substance: GLATIRAMER ACETATE
     Indication: MULTIPLE SCLEROSIS
     Dosage: 40 MG 3X/WEEK
     Route: 058
     Dates: start: 20180621

REACTIONS (5)
  - Pain [Unknown]
  - Abdominal pain [Unknown]
  - Ileus [Recovered/Resolved with Sequelae]
  - Flank pain [Unknown]
  - Intussusception [Recovered/Resolved with Sequelae]

NARRATIVE: CASE EVENT DATE: 201904
